FAERS Safety Report 15806839 (Version 2)
Quarter: 2019Q3

REPORT INFORMATION
  Report Type: Spontaneous
  Country: IT (occurrence: IT)
  Receive Date: 20190110
  Receipt Date: 20190902
  Transmission Date: 20191004
  Serious: Yes (Hospitalization)
  Sender: FDA-Public Use
  Company Number: IT-HORIZON-PRE-0006-2019

PATIENT
  Age: 77 Year
  Sex: Male

DRUGS (9)
  1. SIVASTIN [Concomitant]
     Active Substance: SIMVASTATIN
  2. PREDNISONE. [Suspect]
     Active Substance: PREDNISONE
     Indication: BRONCHITIS
     Dosage: 30MG DAILY
     Route: 048
     Dates: start: 20161201, end: 20181226
  3. SINEMET [Concomitant]
     Active Substance: CARBIDOPA\LEVODOPA
  4. PLAVIX [Suspect]
     Active Substance: CLOPIDOGREL BISULFATE
     Indication: ANTICOAGULANT THERAPY
     Dosage: 75 MG DAILY
     Route: 048
     Dates: start: 20161201, end: 20181226
  5. ZYLORIC [Concomitant]
     Active Substance: ALLOPURINOL
  6. CREON [Concomitant]
     Active Substance: PANCRELIPASE AMYLASE\PANCRELIPASE LIPASE\PANCRELIPASE PROTEASE
  7. BINOCRIT [Concomitant]
     Active Substance: ERYTHROPOIETIN
  8. MESTINON [Concomitant]
     Active Substance: PYRIDOSTIGMINE BROMIDE
  9. OLMETEC [Concomitant]
     Active Substance: OLMESARTAN MEDOXOMIL

REACTIONS (1)
  - Rectal haemorrhage [Recovered/Resolved]

NARRATIVE: CASE EVENT DATE: 20181226
